FAERS Safety Report 7042148-1 (Version None)
Quarter: 2010Q4

REPORT INFORMATION
  Report Type: 
  Country: None (occurrence: None)
  Receive Date: 20101013
  Receipt Date: 20100212
  Transmission Date: 20110411
  Serious: No
  Sender: FDA-Public Use
  Company Number: US-ASTRAZENECA-2010SE06411

PATIENT
  Age: 12 Year
  Sex: Male
  Weight: 33 kg

DRUGS (6)
  1. SYMBICORT [Suspect]
     Indication: ASTHMA
     Dosage: 160/4.5 4 FUFFS BID
     Route: 055
  2. ALBUTEROL [Concomitant]
  3. ALLEGRA [Concomitant]
  4. HYDROXYZINE [Concomitant]
  5. SINGULAIR [Concomitant]
  6. NASONEX [Concomitant]

REACTIONS (2)
  - CROUP INFECTIOUS [None]
  - INFLUENZA [None]
